FAERS Safety Report 19646673 (Version 2)
Quarter: 2021Q3

REPORT INFORMATION
  Report Type: Spontaneous
  Country: IT (occurrence: IT)
  Receive Date: 20210802
  Receipt Date: 20210811
  Transmission Date: 20211014
  Serious: Yes (Other)
  Sender: FDA-Public Use
  Company Number: IT-MYLANLABS-2021M1046364

PATIENT
  Age: 55 Year
  Sex: Female

DRUGS (3)
  1. METILPREDNISOLONE [Concomitant]
     Active Substance: METHYLPREDNISOLONE
     Indication: PRODUCT USED FOR UNKNOWN INDICATION
     Dosage: UNK
     Route: 042
  2. FONDAPARINUX [Suspect]
     Active Substance: FONDAPARINUX
     Indication: CEREBRAL VENOUS THROMBOSIS
     Dosage: UNK
     Route: 058
  3. MANNITOL. [Concomitant]
     Active Substance: MANNITOL
     Indication: PRODUCT USED FOR UNKNOWN INDICATION
     Dosage: UNK
     Route: 042

REACTIONS (2)
  - Coma [Unknown]
  - Off label use [Unknown]
